FAERS Safety Report 6697481-X (Version None)
Quarter: 2010Q2

REPORT INFORMATION
  Report Type: 
  Country: None (occurrence: None)
  Receive Date: 20100426
  Receipt Date: 20100412
  Transmission Date: 20101027
  Serious: Yes (Hospitalization)
  Sender: FDA-Public Use
  Company Number: BR-MEDIMMUNE-MEDI-0011121

PATIENT
  Sex: Female
  Weight: 8.2 kg

DRUGS (8)
  1. SYNAGIS [Suspect]
     Route: 030
     Dates: start: 20090630
  2. SYNAGIS [Suspect]
     Indication: PNEUMONIA
  3. SYNAGIS [Suspect]
     Indication: BRONCHOPNEUMONIA
  4. ACETYLCYSTEINE [Concomitant]
     Dates: start: 20100201
  5. BECLOMETHASONE DIPROPIONATE [Concomitant]
     Dates: start: 20091201
  6. VITAMIN D [Concomitant]
     Indication: ANAEMIA PROPHYLAXIS
     Route: 048
     Dates: start: 20090501
  7. FERROUS SULFATE TAB [Concomitant]
     Indication: ANAEMIA PROPHYLAXIS
     Route: 048
     Dates: start: 20090501
  8. ASCORBIC ACID [Concomitant]
     Indication: PROPHYLAXIS
     Route: 048
     Dates: start: 20100201

REACTIONS (6)
  - BRONCHITIS [None]
  - BRONCHOPNEUMONIA [None]
  - INFLUENZA [None]
  - PNEUMONIA [None]
  - URINARY TRACT INFECTION [None]
  - VIRAL INFECTION [None]
